FAERS Safety Report 15452624 (Version 1)
Quarter: 2018Q4

REPORT INFORMATION
  Report Type: Spontaneous
  Country: US (occurrence: US)
  Receive Date: 20181001
  Receipt Date: 20181001
  Transmission Date: 20190204
  Serious: No
  Sender: FDA-Public Use
  Company Number: US-JAZZ-JPI-P-025983

PATIENT
  Age: 52 Year
  Sex: Female
  Weight: 71.82 kg

DRUGS (6)
  1. LEXAPRO [Suspect]
     Active Substance: ESCITALOPRAM OXALATE
     Indication: ANXIETY
  2. NALTREXONE [Concomitant]
     Active Substance: NALTREXONE
  3. LEXAPRO [Suspect]
     Active Substance: ESCITALOPRAM OXALATE
     Indication: DEPRESSION
     Dosage: UNK
     Dates: start: 2011, end: 20121016
  4. XYREM [Suspect]
     Active Substance: SODIUM OXYBATE
     Indication: NARCOLEPSY
     Dosage: 3 G, BID
     Route: 048
     Dates: start: 20121014, end: 20121107
  5. XYREM [Suspect]
     Active Substance: SODIUM OXYBATE
     Indication: CATAPLEXY
     Dosage: 4.5 G, BID
     Route: 048
     Dates: start: 20121108
  6. PHENTERMINE. [Concomitant]
     Active Substance: PHENTERMINE

REACTIONS (7)
  - Chest discomfort [Recovered/Resolved]
  - Chest pain [Recovered/Resolved]
  - Dizziness [Recovered/Resolved]
  - Headache [Recovered/Resolved]
  - Abnormal sleep-related event [Unknown]
  - Enuresis [Unknown]
  - Head discomfort [Recovered/Resolved]

NARRATIVE: CASE EVENT DATE: 20121016
